FAERS Safety Report 6678998-0 (Version None)
Quarter: 2010Q2

REPORT INFORMATION
  Report Type: 
  Country: None (occurrence: None)
  Receive Date: 20100413
  Receipt Date: 20100401
  Transmission Date: 20101027
  Serious: Yes (Hospitalization)
  Sender: FDA-Public Use
  Company Number: US-SANOFI-AVENTIS-2010SA019226

PATIENT
  Age: 65 Year
  Sex: Female

DRUGS (4)
  1. LOVENOX [Suspect]
     Indication: THROMBOSIS PROPHYLAXIS
     Route: 065
     Dates: start: 20100310
  2. LOVENOX [Suspect]
     Route: 065
     Dates: start: 20100301
  3. AMLODIPINE [Concomitant]
     Indication: HYPERTENSION
  4. ADVAIR DISKUS 100/50 [Concomitant]
     Indication: ASTHMA

REACTIONS (3)
  - INJECTION SITE NODULE [None]
  - INJECTION SITE PAIN [None]
  - THROMBOSIS IN DEVICE [None]
